FAERS Safety Report 5136640-4 (Version None)
Quarter: 2006Q4

REPORT INFORMATION
  Report Type: 
  Country: None (occurrence: None)
  Receive Date: 20061027
  Receipt Date: 20061019
  Transmission Date: 20070319
  Serious: Yes (Hospitalization)
  Sender: FDA-Public Use
  Company Number: GB-ABBOTT-06P-167-0347665-00

PATIENT
  Age: 45 Year
  Sex: Male

DRUGS (8)
  1. VALPROATE SODIUM [Suspect]
     Indication: ALCOHOLIC SEIZURE
     Route: 048
     Dates: start: 20060831, end: 20060912
  2. VALPROATE SODIUM [Suspect]
     Route: 048
  3. PHENYTOIN [Suspect]
     Indication: ALCOHOLIC SEIZURE
     Route: 048
     Dates: start: 20060701, end: 20060912
  4. LEKOVIT CA [Concomitant]
     Indication: DRUG USE FOR UNKNOWN INDICATION
     Route: 048
  5. PROPRANOLOL [Concomitant]
     Indication: DRUG USE FOR UNKNOWN INDICATION
     Route: 048
     Dates: start: 20041001
  6. SENNA [Concomitant]
     Indication: DRUG USE FOR UNKNOWN INDICATION
     Route: 048
  7. RANITIDINE [Concomitant]
     Indication: DRUG USE FOR UNKNOWN INDICATION
     Route: 048
  8. THIAMINE [Concomitant]
     Indication: DRUG USE FOR UNKNOWN INDICATION
     Route: 048
     Dates: start: 20041001

REACTIONS (4)
  - BEDRIDDEN [None]
  - COMMUNICATION DISORDER [None]
  - CONFUSIONAL STATE [None]
  - SOMNOLENCE [None]
